FAERS Safety Report 6503470-8 (Version None)
Quarter: 2009Q4

REPORT INFORMATION
  Report Type: 
  Country: None (occurrence: None)
  Receive Date: 20091217
  Receipt Date: 20091209
  Transmission Date: 20100525
  Serious: Yes (Disabling)
  Sender: FDA-Public Use
  Company Number: JP-ROCHE-666692

PATIENT
  Sex: Male

DRUGS (4)
  1. AVASTIN [Suspect]
     Indication: DIABETIC RETINOPATHY
     Route: 031
     Dates: start: 20090302, end: 20090302
  2. AZOPT [Concomitant]
     Dosage: DOSE FORM: DROPS (INTRAOCULAR)
     Route: 047
     Dates: start: 20081128
  3. TIMOPTOL XE [Concomitant]
     Route: 047
     Dates: start: 20081215
  4. TRAVATAN [Concomitant]
     Dosage: DOSE FORM: DROPS (INTRAOCULAR)
     Route: 047
     Dates: start: 20081215, end: 20090409

REACTIONS (1)
  - RETINAL VASCULAR DISORDER [None]
